FAERS Safety Report 25265843 (Version 1)
Quarter: 2025Q2

REPORT INFORMATION
  Report Type: Spontaneous
  Country: US (occurrence: US)
  Receive Date: 20250503
  Receipt Date: 20250503
  Transmission Date: 20250717
  Serious: No
  Sender: AUROBINDO
  Company Number: US-AUROBINDO-AUR-APL-2025-015242

PATIENT
  Age: 69 Year
  Sex: Male
  Weight: 86 kg

DRUGS (1)
  1. DEXTROMETHORPHAN\GUAIFENESIN [Suspect]
     Active Substance: DEXTROMETHORPHAN\GUAIFENESIN
     Indication: Bronchitis
     Route: 065
     Dates: start: 20250311

REACTIONS (2)
  - Product size issue [Unknown]
  - Wrong technique in product usage process [Unknown]
